FAERS Safety Report 4468292-0 (Version None)
Quarter: 2004Q4

REPORT INFORMATION
  Report Type: 
  Country: None (occurrence: None)
  Receive Date: 20041007
  Receipt Date: 20040929
  Transmission Date: 20050328
  Serious: Yes (Hospitalization)
  Sender: FDA-Public Use
  Company Number: FR-ROCHE-381610

PATIENT
  Age: 56 Year
  Sex: Female

DRUGS (7)
  1. VALIUM [Suspect]
     Indication: DRUG USE FOR UNKNOWN INDICATION
     Route: 048
  2. VALIUM [Suspect]
     Route: 048
  3. LEXOMIL [Suspect]
     Indication: DRUG USE FOR UNKNOWN INDICATION
     Route: 048
  4. BUSPAR [Suspect]
     Indication: DRUG USE FOR UNKNOWN INDICATION
     Route: 048
  5. NORDAZ [Suspect]
     Indication: DRUG USE FOR UNKNOWN INDICATION
     Route: 048
  6. MEPRONIZINE [Suspect]
     Indication: DRUG USE FOR UNKNOWN INDICATION
     Route: 048
  7. NORSET [Suspect]
     Indication: DRUG USE FOR UNKNOWN INDICATION
     Route: 048

REACTIONS (12)
  - BLOOD CREATINE PHOSPHOKINASE INCREASED [None]
  - BODY TEMPERATURE INCREASED [None]
  - CHOLESTASIS [None]
  - CYTOLYTIC HEPATITIS [None]
  - FALL [None]
  - HEART RATE INCREASED [None]
  - HYPOKALAEMIA [None]
  - MALAISE [None]
  - MULTIPLE DRUG OVERDOSE [None]
  - OVERDOSE [None]
  - PNEUMONIA ASPIRATION [None]
  - SOMNOLENCE [None]
